FAERS Safety Report 7941627-X (Version None)
Quarter: 2011Q4

REPORT INFORMATION
  Report Type: 
  Country: None (occurrence: None)
  Receive Date: 20111128
  Receipt Date: 20110928
  Transmission Date: 20120403
  Serious: No
  Sender: FDA-Public Use
  Company Number: US-BAYER-2011-094230

PATIENT
  Sex: Male
  Weight: 172 kg

DRUGS (3)
  1. BISOPROLOL FUMARATE [Concomitant]
  2. LOTREL [Concomitant]
  3. ALEVE (CAPLET) [Suspect]
     Indication: PAIN
     Dosage: UNK
     Route: 048

REACTIONS (1)
  - NO ADVERSE EVENT [None]
